FAERS Safety Report 16612003 (Version 1)
Quarter: 2019Q3

REPORT INFORMATION
  Report Type: Spontaneous
  Country: GB (occurrence: GB)
  Receive Date: 20190722
  Receipt Date: 20190722
  Transmission Date: 20191004
  Serious: Yes (Other)
  Sender: FDA-Public Use
  Company Number: GB-ANIPHARMA-2019-UK-000123

PATIENT
  Age: 75 Year
  Sex: Female

DRUGS (3)
  1. TAMOXIFEN [Suspect]
     Active Substance: TAMOXIFEN
     Indication: BREAST CANCER
     Dosage: UNK
     Route: 048
     Dates: start: 201206
  2. ANASTROZOLE. [Suspect]
     Active Substance: ANASTROZOLE
     Indication: BREAST CANCER
     Dosage: UNK
     Route: 048
     Dates: start: 201206
  3. EXEMESTANE. [Suspect]
     Active Substance: EXEMESTANE
     Indication: BREAST CANCER
     Dosage: UNK
     Route: 065
     Dates: start: 201206

REACTIONS (7)
  - Breast mass [Unknown]
  - Metastases to chest wall [Unknown]
  - Breast cancer recurrent [Unknown]
  - Metastases to lymph nodes [Unknown]
  - Drug intolerance [Unknown]
  - Breast enlargement [Unknown]
  - Visual impairment [Unknown]

NARRATIVE: CASE EVENT DATE: 201206
